FAERS Safety Report 21201496 (Version 1)
Quarter: 2022Q3

REPORT INFORMATION
  Report Type: Spontaneous
  Country: US (occurrence: None)
  Receive Date: 20220810
  Receipt Date: 20220810
  Transmission Date: 20221027
  Serious: Yes (Disabling, Other)
  Sender: FDA-Public Use
  Company Number: None

PATIENT
  Age: 33 Year
  Sex: Female
  Weight: 103.5 kg

DRUGS (1)
  1. DEPO-PROVERA [Suspect]
     Active Substance: MEDROXYPROGESTERONE ACETATE
     Indication: Drug therapy
     Dates: start: 20220621

REACTIONS (9)
  - Heavy menstrual bleeding [None]
  - Muscular weakness [None]
  - Tremor [None]
  - Decreased appetite [None]
  - Headache [None]
  - Pain [None]
  - Gait disturbance [None]
  - Dysstasia [None]
  - Condition aggravated [None]

NARRATIVE: CASE EVENT DATE: 20220707
